FAERS Safety Report 14174947 (Version 1)
Quarter: 2017Q4

REPORT INFORMATION
  Report Type: Spontaneous
  Country: US (occurrence: US)
  Receive Date: 20171109
  Receipt Date: 20171109
  Transmission Date: 20180321
  Serious: Yes (Other)
  Sender: FDA-Public Use
  Company Number: US-TEVA-822773USA

PATIENT
  Sex: Male
  Weight: 81.72 kg

DRUGS (8)
  1. FENTORA [Suspect]
     Active Substance: FENTANYL CITRATE
     Indication: CANCER PAIN
     Dosage: 800UG EVERY 4 TO 6 HOURS
     Route: 002
     Dates: start: 2011
  2. FENTORA [Suspect]
     Active Substance: FENTANYL CITRATE
     Indication: PAIN
  3. VITAMINS [Concomitant]
     Active Substance: VITAMINS
     Route: 065
  4. FISH OIL [Concomitant]
     Active Substance: FISH OIL
     Route: 065
  5. FENTORA [Suspect]
     Active Substance: FENTANYL CITRATE
     Indication: HEADACHE
  6. BELBUCA [Concomitant]
     Active Substance: BUPRENORPHINE HYDROCHLORIDE
     Indication: PAIN
     Route: 065
  7. METFORMIN [Concomitant]
     Active Substance: METFORMIN HYDROCHLORIDE
     Indication: DIABETES MELLITUS
     Route: 065
  8. ATORVASTATIN [Concomitant]
     Active Substance: ATORVASTATIN
     Route: 065

REACTIONS (12)
  - Bone disorder [Not Recovered/Not Resolved]
  - Product use issue [Unknown]
  - Eating disorder [Unknown]
  - Thinking abnormal [Unknown]
  - Drug dose omission [Unknown]
  - Memory impairment [Unknown]
  - Product use in unapproved indication [Unknown]
  - Neck surgery [Recovered/Resolved]
  - Dependence [Not Recovered/Not Resolved]
  - Tooth extraction [Recovered/Resolved]
  - Fall [Unknown]
  - Pain [Not Recovered/Not Resolved]

NARRATIVE: CASE EVENT DATE: 2015
